FAERS Safety Report 23509106 (Version 2)
Quarter: 2024Q1

REPORT INFORMATION
  Report Type: Report from Study
  Country: CO (occurrence: CO)
  Receive Date: 20240210
  Receipt Date: 20240229
  Transmission Date: 20240410
  Serious: Yes (Other)
  Sender: FDA-Public Use
  Company Number: CO-ABBVIE-5628875

PATIENT
  Age: 61 Year
  Sex: Male
  Weight: 55 kg

DRUGS (3)
  1. SKYRIZI [Suspect]
     Active Substance: RISANKIZUMAB-RZAA
     Indication: Psoriasis
     Dosage: FORM STRENGTH: 75 MILLIGRAM
     Route: 058
     Dates: start: 20230427, end: 20231018
  2. METHOTREXATE [Concomitant]
     Active Substance: METHOTREXATE
     Indication: Psoriasis
     Dosage: FORM STRENGTH: 2.5 MILLIGRAM
     Route: 048
  3. LOSARTAN [Concomitant]
     Active Substance: LOSARTAN
     Indication: Hypertension
     Dosage: FORM STRENGTH: 50 MILLIGRAM
     Route: 048

REACTIONS (3)
  - Syphilis [Recovered/Resolved]
  - Multi-organ disorder [Unknown]
  - Psoriasis [Unknown]

NARRATIVE: CASE EVENT DATE: 20240101
